APPROVED DRUG PRODUCT: OMONTYS PRESERVATIVE FREE
Active Ingredient: PEGINESATIDE ACETATE
Strength: EQ 6MG BASE/0.5ML (EQ 6MG BASE/0.5ML)
Dosage Form/Route: SOLUTION;INTRAVENOUS, SUBCUTANEOUS
Application: N202799 | Product #006
Applicant: TAKEDA PHARMACEUTICALS USA INC
Approved: Mar 27, 2012 | RLD: No | RS: No | Type: DISCN

PATENTS:
Patent 7919461 | Expires: Jun 2, 2026
Patent 7550433 | Expires: Jun 2, 2026